FAERS Safety Report 26107169 (Version 1)
Quarter: 2025Q4

REPORT INFORMATION
  Report Type: Spontaneous
  Country: EU (occurrence: EU)
  Receive Date: 20251201
  Receipt Date: 20251201
  Transmission Date: 20260117
  Serious: Yes (Hospitalization)
  Sender: ACCORD
  Company Number: None

PATIENT
  Age: 69 Year
  Sex: Male

DRUGS (2)
  1. PEMETREXED [Suspect]
     Active Substance: PEMETREXED
     Indication: Product used for unknown indication
     Dosage: STRENGTH: 100 MG, EFG, 1 VIAL
     Dates: start: 20250221
  2. CARBOPLATIN [Concomitant]
     Active Substance: CARBOPLATIN
     Dosage: STRENGTH: 10 MG/ML, EFG, 1 VIAL OF 45 ML
     Dates: start: 20250221

REACTIONS (1)
  - Hepatotoxicity [Recovered/Resolved]

NARRATIVE: CASE EVENT DATE: 20250325
